FAERS Safety Report 15896689 (Version 1)
Quarter: 2019Q1

REPORT INFORMATION
  Report Type: Spontaneous
  Country: US (occurrence: US)
  Receive Date: 20190131
  Receipt Date: 20190131
  Transmission Date: 20190417
  Serious: Yes (Other)
  Sender: FDA-Public Use
  Company Number: US-BRACCO-2019US00373

PATIENT
  Age: 58 Year
  Sex: Female

DRUGS (1)
  1. MULTIHANCE [Suspect]
     Active Substance: GADOBENATE DIMEGLUMINE
     Indication: NUCLEAR MAGNETIC RESONANCE IMAGING BRAIN
     Dosage: 10 ML, SINGLE
     Route: 042
     Dates: start: 20190123, end: 20190123

REACTIONS (4)
  - Vomiting [Recovered/Resolved]
  - Anxiety [Recovered/Resolved]
  - Syncope [Recovered/Resolved]
  - Abdominal discomfort [Recovered/Resolved]

NARRATIVE: CASE EVENT DATE: 20190123
